FAERS Safety Report 9613365 (Version 1)
Quarter: 2013Q4

REPORT INFORMATION
  Report Type: Spontaneous
  Country: JP (occurrence: None)
  Receive Date: 20131008
  Receipt Date: 20131008
  Transmission Date: 20140711
  Serious: Yes (Death, Hospitalization, Other)
  Sender: FDA-Public Use
  Company Number: 2009JP000092

PATIENT
  Age: 36 Year
  Sex: Female
  Weight: 56.6 kg

DRUGS (27)
  1. PROGRAF [Suspect]
     Indication: LUPUS NEPHRITIS
     Route: 048
     Dates: start: 20070606, end: 20080624
  2. MEDROL [Suspect]
     Indication: LUPUS NEPHRITIS
     Route: 048
     Dates: start: 20070606, end: 20080624
  3. MEDROL [Suspect]
     Indication: HISTIOCYTOSIS HAEMATOPHAGIC
     Route: 048
     Dates: start: 20070606, end: 20080624
  4. MEDROL [Suspect]
     Route: 048
     Dates: start: 20070606, end: 20080624
  5. LASIX [Suspect]
     Indication: HYPERTENSION
     Route: 048
     Dates: end: 20090106
  6. DIOVAN [Suspect]
     Indication: HYPERTENSION
     Route: 048
     Dates: end: 20080116
  7. BONALON (ALENDRONAE SODIUM) [Concomitant]
  8. LENDORMIN (BROTIZOLAM) [Concomitant]
  9. MEVAN (PRAVASTATIN SODIUM) [Concomitant]
  10. BAYASPIRIN (ACETYLSALICYIC ACID) [Concomitant]
  11. NORVASC (AMLODIPINE) [Concomitant]
  12. FAMOTIDINE (FAMOTIDINE) [Concomitant]
  13. GASTER (FAMOTIDINE) [Concomitant]
  14. CARDENALIN (DOXAZOSIN MESILATE) [Concomitant]
  15. BACTRAMIN (SULFAMETHOXAZOLE, TRIMETHOPRIM) [Concomitant]
  16. ONEALFA (ALFACALCIDOL) [Concomitant]
  17. LIPITOR (ATORVASTATIN) [Concomitant]
  18. ZYLORIC (ALLOPURINOL) [Concomitant]
  19. RENIVACE (ENALAPRIL MALEATE) [Concomitant]
  20. RISPERDAL (RISPERIDONE) [Concomitant]
  21. BUFFERIN (ACETYLSALICYLIC ACID) [Concomitant]
  22. ARGAMATE (CALCIUM POLYSTYRENE SULFONATE) [Concomitant]
  23. BREDININ (MIZORIBINE) [Concomitant]
  24. SELBEX (TERPRENONE) [Concomitant]
  25. NU-LOTAN (LOSARTAN POTASSIUM) [Concomitant]
  26. HEPARIN (HEPARIN) [Concomitant]
  27. IMMUNOGLOBULIN /07494701/ (IMMUNOGLOBULINS NOS) [Concomitant]

REACTIONS (20)
  - Blood urea increased [None]
  - Disseminated intravascular coagulation [None]
  - Pancreatitis [None]
  - Blood creatinine increased [None]
  - Hypertension [None]
  - Hyperlipidaemia [None]
  - Condition aggravated [None]
  - Substance-induced psychotic disorder [None]
  - Hyperuricaemia [None]
  - Blood urine present [None]
  - Hyperkalaemia [None]
  - Histiocytosis haematophagic [None]
  - Gastric ulcer haemorrhage [None]
  - Dysuria [None]
  - Pain in jaw [None]
  - Peritonsillar abscess [None]
  - Peritonsillar abscess [None]
  - Multi-organ failure [None]
  - Intentional drug misuse [None]
  - Lupus nephritis [None]
